FAERS Safety Report 7761307-3 (Version None)
Quarter: 2011Q3

REPORT INFORMATION
  Report Type: 
  Country: None (occurrence: None)
  Receive Date: 20110920
  Receipt Date: 20110914
  Transmission Date: 20111222
  Serious: No
  Sender: FDA-Public Use
  Company Number: US-PFIZER INC-2011218221

PATIENT
  Sex: Female
  Weight: 70.295 kg

DRUGS (5)
  1. LIPITOR [Suspect]
     Indication: BLOOD CHOLESTEROL ABNORMAL
     Dosage: 10 MG, DAILY
  2. ATENOLOL [Concomitant]
     Indication: HYPERTENSION
     Dosage: 100 MG, DAILY
  3. MULTI-VITAMINS [Concomitant]
     Dosage: UNK
  4. ACETYLSALICYLIC ACID [Concomitant]
     Indication: CARDIAC DISORDER
     Dosage: 325 MG, DAILY
  5. CALCIUM [Concomitant]
     Indication: MINERAL SUPPLEMENTATION
     Dosage: 500 MG, UNK

REACTIONS (1)
  - BLOOD CHOLESTEROL ABNORMAL [None]
